FAERS Safety Report 19077050 (Version 1)
Quarter: 2021Q1

REPORT INFORMATION
  Report Type: Spontaneous
  Country: US (occurrence: US)
  Receive Date: 20210330
  Receipt Date: 20210330
  Transmission Date: 20210420
  Serious: Yes (Hospitalization)
  Sender: FDA-Public Use
  Company Number: None

PATIENT
  Age: 27 Year
  Sex: Female

DRUGS (5)
  1. GLEEVEC [Suspect]
     Active Substance: IMATINIB MESYLATE
     Indication: LEUKAEMIA RECURRENT
     Route: 048
     Dates: start: 20210303, end: 20210305
  2. BUTALBITAL/ACETAMINOPHEN/CAFF [Concomitant]
     Dates: start: 20210304, end: 20210304
  3. FLUTICASONE. [Concomitant]
     Active Substance: FLUTICASONE
     Dates: start: 20210301, end: 20210305
  4. ONDANSETRON ODT [Concomitant]
     Active Substance: ONDANSETRON
     Dates: start: 20210304, end: 20210305
  5. DOXYCYCLINE 100MG [Concomitant]
     Active Substance: DOXYCYCLINE
     Dates: start: 20210301, end: 20210305

REACTIONS (1)
  - Leukaemia recurrent [None]

NARRATIVE: CASE EVENT DATE: 20210305
